FAERS Safety Report 20728777 (Version 1)
Quarter: 2022Q2

REPORT INFORMATION
  Report Type: Spontaneous
  Country: HR (occurrence: HR)
  Receive Date: 20220420
  Receipt Date: 20220420
  Transmission Date: 20220721
  Serious: Yes (Other)
  Sender: FDA-Public Use
  Company Number: None

PATIENT
  Age: 38 Year
  Sex: Male

DRUGS (1)
  1. OXAZEPAM [Suspect]
     Active Substance: OXAZEPAM
     Dosage: 60 DF, FREQUENCY TIME- 1 DAY, DURATION-1 DAYS, ADR IS ADEQUATELY LABELLED.
     Route: 048
     Dates: start: 20220128, end: 20220128

REACTIONS (3)
  - Suicide attempt [Unknown]
  - Somnolence [Unknown]
  - Intentional overdose [Unknown]

NARRATIVE: CASE EVENT DATE: 20220128
